FAERS Safety Report 7957107-1 (Version None)
Quarter: 2011Q4

REPORT INFORMATION
  Report Type: 
  Country: None (occurrence: None)
  Receive Date: 20111205
  Receipt Date: 20111129
  Transmission Date: 20120403
  Serious: Yes (Death)
  Sender: FDA-Public Use
  Company Number: DE-ROCHE-1017616

PATIENT
  Sex: Female

DRUGS (2)
  1. INTERFERON ALFA [Concomitant]
     Indication: RENAL CELL CARCINOMA
  2. AVASTIN [Suspect]
     Indication: RENAL CELL CARCINOMA

REACTIONS (1)
  - NEOPLASM MALIGNANT [None]
